FAERS Safety Report 23707572 (Version 2)
Quarter: 2024Q2

REPORT INFORMATION
  Report Type: Spontaneous
  Country: US (occurrence: US)
  Receive Date: 20240404
  Receipt Date: 20240413
  Transmission Date: 20240716
  Serious: Yes (Hospitalization, Other)
  Sender: FDA-Public Use
  Company Number: US-ABBVIE-5702647

PATIENT
  Age: 31 Year
  Sex: Female
  Weight: 54 kg

DRUGS (2)
  1. BOTOX [Suspect]
     Active Substance: ONABOTULINUMTOXINA
     Indication: Skin cosmetic procedure
     Dosage: TIME INTERVAL: AS NECESSARY
     Route: 030
     Dates: start: 202208, end: 202208
  2. BOTOX [Suspect]
     Active Substance: ONABOTULINUMTOXINA
     Indication: Skin cosmetic procedure
     Dosage: TIME INTERVAL: AS NECESSARY
     Route: 030
     Dates: start: 2020, end: 2020

REACTIONS (10)
  - Botulism [Not Recovered/Not Resolved]
  - Paralysis [Not Recovered/Not Resolved]
  - Dysphagia [Recovered/Resolved]
  - Dry eye [Recovered/Resolved]
  - Anxiety [Recovered/Resolved]
  - Diplopia [Recovered/Resolved]
  - Constipation [Recovered/Resolved]
  - Fluid intake reduced [Not Recovered/Not Resolved]
  - Feeding disorder [Not Recovered/Not Resolved]
  - Panic reaction [Recovered/Resolved]

NARRATIVE: CASE EVENT DATE: 20230801
